FAERS Safety Report 7791890-3 (Version None)
Quarter: 2011Q4

REPORT INFORMATION
  Report Type: 
  Country: None (occurrence: None)
  Receive Date: 20111003
  Receipt Date: 20110930
  Transmission Date: 20120403
  Serious: No
  Sender: FDA-Public Use
  Company Number: US-PFIZER INC-2011234395

PATIENT
  Sex: Female
  Weight: 79.365 kg

DRUGS (4)
  1. NICOTROL [Suspect]
     Indication: SMOKING CESSATION THERAPY
     Dosage: UNK
     Route: 055
     Dates: start: 20110901, end: 20110929
  2. EFFEXOR [Concomitant]
     Indication: DEPRESSION
     Dosage: UNK, DAILY
     Route: 048
     Dates: start: 20110101
  3. DEPAKOTE [Concomitant]
     Dosage: 1000 MG, 2X/DAY
     Route: 048
  4. XANAX [Concomitant]
     Dosage: 5 MG, DAILY
     Route: 048

REACTIONS (1)
  - DRUG INEFFECTIVE [None]
